FAERS Safety Report 14628452 (Version 4)
Quarter: 2018Q3

REPORT INFORMATION
  Report Type: Spontaneous
  Country: US (occurrence: US)
  Receive Date: 20180312
  Receipt Date: 20180813
  Transmission Date: 20181010
  Serious: Yes (Other)
  Sender: FDA-Public Use
  Company Number: US-ABBVIE-18K-163-2283195-00

PATIENT
  Sex: Male
  Weight: 95.34 kg

DRUGS (6)
  1. ACTEMRA [Suspect]
     Active Substance: TOCILIZUMAB
     Indication: RHEUMATOID ARTHRITIS
     Route: 065
     Dates: start: 201707, end: 201712
  2. XELJANZ XR [Suspect]
     Active Substance: TOFACITINIB CITRATE
     Indication: RHEUMATOID ARTHRITIS
     Route: 048
     Dates: start: 2017, end: 2017
  3. XELJANZ XR [Suspect]
     Active Substance: TOFACITINIB CITRATE
     Route: 065
     Dates: start: 2018, end: 2018
  4. METHOTREXATE. [Concomitant]
     Active Substance: METHOTREXATE
     Indication: PRODUCT USED FOR UNKNOWN INDICATION
     Dates: start: 201505, end: 201710
  5. ENBREL [Suspect]
     Active Substance: ETANERCEPT
     Indication: RHEUMATOID ARTHRITIS
     Route: 065
     Dates: start: 201609, end: 201612
  6. HUMIRA [Suspect]
     Active Substance: ADALIMUMAB
     Indication: RHEUMATOID ARTHRITIS
     Route: 058
     Dates: start: 201612, end: 201707

REACTIONS (14)
  - Knee arthroplasty [Unknown]
  - Drug effect decreased [Unknown]
  - Oral pain [Unknown]
  - Drug hypersensitivity [Unknown]
  - Hypophagia [Unknown]
  - Oral mucosal blistering [Recovering/Resolving]
  - Drug effect decreased [Unknown]
  - Drug effect decreased [Unknown]
  - Weight decreased [Unknown]
  - Fluid intake reduced [Unknown]
  - Scalloped tongue [Unknown]
  - Tongue blistering [Recovering/Resolving]
  - Shoulder arthroplasty [Recovering/Resolving]
  - Prostatomegaly [Unknown]

NARRATIVE: CASE EVENT DATE: 2016
